FAERS Safety Report 8764329 (Version 13)
Quarter: 2014Q2

REPORT INFORMATION
  Report Type: Spontaneous
  Country: US (occurrence: US)
  Receive Date: 20120831
  Receipt Date: 20140610
  Transmission Date: 20141212
  Serious: Yes (Death, Hospitalization, Other)
  Sender: FDA-Public Use
  Company Number: US-PFIZER INC-2012212212

PATIENT
  Age: 76 Year
  Sex: Male
  Weight: 113.4 kg

DRUGS (16)
  1. IBUPROFEN [Suspect]
     Dosage: 800 MG, DAILY
     Dates: start: 200902, end: 200906
  2. TYLENOL [Suspect]
     Indication: ANALGESIC THERAPY
     Dosage: 650 MG, EVERY 4 HRS AS NEEDED
     Route: 048
     Dates: start: 20090211
  3. TYLENOL [Suspect]
     Indication: ANALGESIC THERAPY
     Dosage: 650 MG, EVERY 4 HRS AS NEEDED
     Route: 054
     Dates: start: 20090211
  4. PERCOCET [Suspect]
     Indication: PAIN
     Dosage: ONE EVERY 6 HOURS AS NEEDED
     Route: 048
     Dates: start: 20090211, end: 200906
  5. TYLOX [Suspect]
     Route: 065
  6. OXYCOCET [Suspect]
     Indication: PAIN
     Dosage: EVERY NIGHT
  7. ZOFRAN [Concomitant]
     Route: 042
  8. PHENERGAN [Concomitant]
     Route: 048
  9. PHENERGAN [Concomitant]
     Route: 048
  10. PHENERGAN [Concomitant]
     Route: 048
  11. AMBIEN [Concomitant]
     Route: 048
  12. AMBIEN [Concomitant]
     Route: 048
  13. AMBIEN [Concomitant]
     Route: 048
  14. CARDURA [Concomitant]
     Route: 048
  15. COLACE [Concomitant]
     Route: 048
  16. PERCOCET-5 [Concomitant]
     Route: 048

REACTIONS (7)
  - Hepatitis cholestatic [Fatal]
  - Septic shock [Fatal]
  - Toxicity to various agents [Fatal]
  - Liver injury [Fatal]
  - Renal failure acute [Fatal]
  - Intestinal haemorrhage [Fatal]
  - Cholecystitis chronic [Fatal]
